FAERS Safety Report 11748234 (Version 1)
Quarter: 2015Q4

REPORT INFORMATION
  Report Type: Spontaneous
  Country: US (occurrence: US)
  Receive Date: 20151117
  Receipt Date: 20151117
  Transmission Date: 20160304
  Serious: No
  Sender: FDA-Public Use
  Company Number: US-GLAXOSMITHKLINE-US2015GSK159938

PATIENT
  Age: 6 Year
  Sex: Female

DRUGS (1)
  1. ADVAIR HFA [Suspect]
     Active Substance: FLUTICASONE PROPIONATE\SALMETEROL XINAFOATE
     Indication: ASTHMA
     Dosage: 2 PUFF(S), BID, ONCE AT 2PM AND ONCE AT 2PM
     Route: 055

REACTIONS (3)
  - Inability to afford medication [Unknown]
  - Drug administered to patient of inappropriate age [Unknown]
  - Off label use [Unknown]
